FAERS Safety Report 24461118 (Version 1)
Quarter: 2024Q4

REPORT INFORMATION
  Report Type: Spontaneous
  Country: KR (occurrence: KR)
  Receive Date: 20241018
  Receipt Date: 20241018
  Transmission Date: 20250114
  Serious: No
  Sender: ROCHE
  Company Number: KR-ROCHE-3553973

PATIENT
  Age: 21 Year
  Sex: Male

DRUGS (3)
  1. MABTHERA [Suspect]
     Active Substance: RITUXIMAB
     Indication: Encephalitis
     Route: 065
     Dates: start: 20221115
  2. MABTHERA [Suspect]
     Active Substance: RITUXIMAB
     Indication: Myelitis
  3. MABTHERA [Suspect]
     Active Substance: RITUXIMAB
     Indication: Encephalomyelitis

REACTIONS (1)
  - Pyrexia [Recovered/Resolved]

NARRATIVE: CASE EVENT DATE: 20221115
